FAERS Safety Report 4673290-8 (Version None)
Quarter: 2005Q2

REPORT INFORMATION
  Report Type: 
  Country: None (occurrence: None)
  Receive Date: 20050524
  Receipt Date: 20050524
  Transmission Date: 20051028
  Serious: Yes (Death)
  Sender: FDA-Public Use
  Company Number: None

PATIENT
  Age: 81 Year
  Sex: Male
  Weight: 66.82 kg

DRUGS (19)
  1. ENOXAPARIN SODIUM [Suspect]
     Indication: ATRIAL FIBRILLATION
     Dosage: 65MG TWICE DAILY S.C.
     Route: 058
  2. ACETAMINOPHEN [Concomitant]
  3. ALBUTEROL [Concomitant]
  4. ASPIRIN [Concomitant]
  5. AZITHROMYCIN [Concomitant]
  6. BISACODYL [Concomitant]
  7. CETYLPYRIDINIUM/MENTHOL LOZENGE [Concomitant]
  8. DIGOXIN [Concomitant]
  9. FOSINOPRIL [Concomitant]
  10. PRAZOSIN [Concomitant]
  11. METOPROLOL [Concomitant]
  12. MORPHINE [Concomitant]
  13. PREDNISONE TAB [Concomitant]
  14. METHYLPREDNISOLONE [Concomitant]
  15. LORAZEPAM [Concomitant]
  16. IPRATROPIUM BROMIDE [Concomitant]
  17. DILTIAZEM [Concomitant]
  18. RANITIDINE [Concomitant]
  19. SIMVASTATIN [Concomitant]

REACTIONS (5)
  - COMA [None]
  - DEPRESSED LEVEL OF CONSCIOUSNESS [None]
  - FALL [None]
  - HEAD INJURY [None]
  - LACERATION [None]
